FAERS Safety Report 8613528-5 (Version None)
Quarter: 2012Q3

REPORT INFORMATION
  Report Type: 
  Country: None (occurrence: None)
  Receive Date: 20120823
  Receipt Date: 20120807
  Transmission Date: 20120928
  Serious: Yes (Hospitalization)
  Sender: FDA-Public Use
  Company Number: JP-009507513-1208JPN003974

PATIENT

DRUGS (8)
  1. TELAVIC [Suspect]
     Route: 048
     Dates: start: 20120702, end: 20120708
  2. DIFLUNISAL [Concomitant]
     Indication: HYPERTENSION
     Route: 048
  3. PEG-INTRON [Suspect]
     Indication: HEPATITIS C
     Dosage: 1.5MCG/KG/WEEK
     Route: 058
     Dates: start: 20120604, end: 20120717
  4. REBETOL [Suspect]
     Dosage: 400 MG, ONCE
     Route: 048
     Dates: start: 20120709, end: 20120716
  5. REBETOL [Suspect]
     Indication: HEPATITIS C
     Dosage: 800 MG, ONCE
     Route: 048
     Dates: start: 20120604, end: 20120708
  6. TELAVIC [Suspect]
     Indication: HEPATITIS C
     Dosage: 2250 MG, ONCE
     Route: 048
     Dates: start: 20120604, end: 20120701
  7. LANSOPRAZOLE [Concomitant]
     Indication: PROPHYLAXIS
     Dosage: 15 MG, ONCE
     Route: 048
     Dates: start: 20120609
  8. TELAVIC [Suspect]
     Route: 048
     Dates: start: 20120709, end: 20120716

REACTIONS (1)
  - ANAEMIA [None]
